FAERS Safety Report 6042604-9 (Version None)
Quarter: 2009Q1

REPORT INFORMATION
  Report Type: 
  Country: None (occurrence: None)
  Receive Date: 20090119
  Receipt Date: 20081201
  Transmission Date: 20090719
  Serious: Yes (Other)
  Sender: FDA-Public Use
  Company Number: US-PFIZER INC-2008150413

PATIENT
  Sex: Female

DRUGS (16)
  1. CHANTIX [Suspect]
     Indication: SMOKING CESSATION THERAPY
     Dosage: UNK
     Dates: start: 20081110
  2. TIZANIDINE HCL [Concomitant]
     Dosage: UNK
  3. SITAGLIPTIN [Concomitant]
     Dosage: UNK
  4. HYDROCODONE BITARTRATE + ACETAMINOPHEN [Concomitant]
     Dosage: UNK
  5. DILTIAZEM [Concomitant]
     Dosage: UNK
  6. ISOSORBIDE MONONITRATE [Concomitant]
     Dosage: UNK
  7. HYDRALAZINE HCL [Concomitant]
     Dosage: UNK
  8. GABAPENTIN [Concomitant]
     Dosage: UNK
  9. FUROSEMIDE [Concomitant]
     Dosage: UNK
  10. ROPINIROLE [Concomitant]
     Dosage: UNK
  11. LISINOPRIL [Concomitant]
     Dosage: UNK
  12. PAROXETINE [Concomitant]
     Dosage: UNK
  13. POTASSIUM CHLORIDE [Concomitant]
     Dosage: UNK
  14. AMITRIPTYLINE [Concomitant]
     Dosage: UNK
  15. TRICOR [Concomitant]
     Dosage: UNK
  16. MORPHINE [Concomitant]
     Dosage: UNK

REACTIONS (2)
  - IMPAIRED DRIVING ABILITY [None]
  - SOMNOLENCE [None]
